FAERS Safety Report 8449953-5 (Version None)
Quarter: 2012Q2

REPORT INFORMATION
  Report Type: 
  Country: None (occurrence: None)
  Receive Date: 20120620
  Receipt Date: 20120613
  Transmission Date: 20120825
  Serious: Yes (Hospitalization, Other)
  Sender: FDA-Public Use
  Company Number: PHHY2012BO050913

PATIENT
  Sex: Male

DRUGS (2)
  1. IMATINIB MESYLATE [Suspect]
     Indication: CHRONIC MYELOID LEUKAEMIA
     Dosage: 400 MG, DAILY
     Dates: start: 20110201
  2. IMATINIB MESYLATE [Suspect]
     Dosage: 400 MG, DAILY
     Dates: start: 20110201

REACTIONS (3)
  - DIARRHOEA [None]
  - DECREASED IMMUNE RESPONSIVENESS [None]
  - GASTROINTESTINAL VIRAL INFECTION [None]
